FAERS Safety Report 6392238-1 (Version None)
Quarter: 2009Q4

REPORT INFORMATION
  Report Type: 
  Country: None (occurrence: None)
  Receive Date: 20091005
  Receipt Date: 20090916
  Transmission Date: 20100525
  Serious: Yes (Hospitalization)
  Sender: FDA-Public Use
  Company Number: UK245473

PATIENT
  Sex: Female
  Weight: 13 kg

DRUGS (1)
  1. KINERET [Suspect]
     Indication: JUVENILE ARTHRITIS
     Dosage: (26 MG SUBCUTANEOUS)
     Route: 058
     Dates: start: 20061121

REACTIONS (5)
  - DISEASE PROGRESSION [None]
  - JUVENILE ARTHRITIS [None]
  - PYREXIA [None]
  - VIRAL INFECTION [None]
  - VOMITING [None]
